FAERS Safety Report 4731432-X (Version None)
Quarter: 2005Q3

REPORT INFORMATION
  Report Type: 
  Country: None (occurrence: None)
  Receive Date: 20050801
  Receipt Date: 20050801
  Transmission Date: 20060218
  Serious: Yes (Life-Threatening, Hospitalization)
  Sender: FDA-Public Use
  Company Number: None

PATIENT
  Age: 56 Year
  Sex: Female
  Weight: 92 kg

DRUGS (1)
  1. COREG [Suspect]
     Dates: start: 20040101, end: 20040618

REACTIONS (3)
  - DYSPNOEA [None]
  - FEELING ABNORMAL [None]
  - TREATMENT NONCOMPLIANCE [None]
